FAERS Safety Report 17161476 (Version 2)
Quarter: 2019Q4

REPORT INFORMATION
  Report Type: Report from Study
  Country: CL (occurrence: CL)
  Receive Date: 20191216
  Receipt Date: 20191225
  Transmission Date: 20200122
  Serious: Yes (Other)
  Sender: FDA-Public Use
  Company Number: NVSC2019CL059237

PATIENT
  Age: 32 Year
  Sex: Female

DRUGS (1)
  1. KISQALI [Suspect]
     Active Substance: RIBOCICLIB
     Indication: BREAST CANCER
     Dosage: 600 MG
     Route: 048
     Dates: start: 20191112

REACTIONS (14)
  - Sinus arrhythmia [Unknown]
  - Haematocrit decreased [Unknown]
  - Anisocytosis [Unknown]
  - White blood cell count decreased [Unknown]
  - Blood alkaline phosphatase increased [Unknown]
  - Platelet count decreased [Unknown]
  - Haemoglobin decreased [Unknown]
  - Poikilocytosis [Unknown]
  - Decreased immune responsiveness [Unknown]
  - Neutrophil count decreased [Unknown]
  - Red cell distribution width decreased [Unknown]
  - Red blood cell abnormality [Unknown]
  - Red blood cell count decreased [Unknown]
  - Lymphocyte count decreased [Unknown]

NARRATIVE: CASE EVENT DATE: 20191202
